FAERS Safety Report 9786122 (Version 3)
Quarter: 2014Q1

REPORT INFORMATION
  Report Type: Report from Study
  Country: BR (occurrence: BR)
  Receive Date: 20131227
  Receipt Date: 20140129
  Transmission Date: 20141002
  Serious: Yes (Hospitalization, Other)
  Sender: FDA-Public Use
  Company Number: BR-MERCK-1312BRA010465

PATIENT
  Age: 58 Year
  Sex: Male
  Weight: 100 kg

DRUGS (11)
  1. DEXAMETHASONE [Suspect]
     Indication: PLASMA CELL MYELOMA
     Dosage: 20 MG, CYCLICAL
     Route: 048
     Dates: start: 20130702, end: 20131125
  2. DEXAMETHASONE [Suspect]
     Dosage: 20 MG, CYCLICAL
     Route: 048
     Dates: start: 20131216
  3. BORTEZOMIB [Suspect]
     Indication: PLASMA CELL MYELOMA
     Dosage: 1 MG/M2, CYCLICAL
     Route: 058
     Dates: start: 20130702, end: 20131125
  4. BORTEZOMIB [Suspect]
     Dosage: 1 MG/M2, CYCLICAL
     Dates: start: 20131216
  5. STUDY DRUG (UNSPECIFIED) (BLINDED) [Suspect]
     Indication: PLASMA CELL MYELOMA
     Dosage: UNK, CYCLICAL
     Dates: start: 20130702, end: 20131125
  6. STUDY DRUG (UNSPECIFIED) (BLINDED) [Suspect]
     Dosage: UNK, CYCLICAL
     Dates: start: 20131216
  7. DIPYRONE [Concomitant]
     Dosage: UNK
     Dates: start: 20131129
  8. ACETAMINOPHEN (PARACETAMOL) [Concomitant]
     Dosage: UNK
     Dates: start: 20131125, end: 20131211
  9. ENOXAPARIN SODIUM [Concomitant]
     Dosage: UNK
     Dates: start: 20131129, end: 20131211
  10. DIAZEPAM [Concomitant]
     Dosage: UNK
     Dates: start: 20131130, end: 20131205
  11. BISACODYL (+) DOCUSATE SODIUM [Concomitant]
     Dosage: UNK
     Dates: start: 20131229

REACTIONS (1)
  - Femur fracture [Recovered/Resolved]
